FAERS Safety Report 10653398 (Version 3)
Quarter: 2015Q3

REPORT INFORMATION
  Report Type: Report from Study
  Country: BR (occurrence: BR)
  Receive Date: 20141215
  Receipt Date: 20150731
  Transmission Date: 20151125
  Serious: Yes (Hospitalization)
  Sender: FDA-Public Use
  Company Number: BR-ROCHE-1469643

PATIENT
  Age: 47 Year
  Sex: Female
  Weight: 85 kg

DRUGS (11)
  1. PREDNISONE. [Concomitant]
     Active Substance: PREDNISONE
  2. CYCLOBENZAPRINE [Concomitant]
     Active Substance: CYCLOBENZAPRINE
  3. ARAVA [Concomitant]
     Active Substance: LEFLUNOMIDE
  4. AMITRIPTYLINE [Concomitant]
     Active Substance: AMITRIPTYLINE
  5. ACTEMRA [Suspect]
     Active Substance: TOCILIZUMAB
     Indication: RHEUMATOID ARTHRITIS
     Dosage: LAST INFUSION: 29/OCT/2014.
     Route: 042
     Dates: start: 20120601
  6. FOLIC ACID. [Concomitant]
     Active Substance: FOLIC ACID
  7. METHOTREXATE [Concomitant]
     Active Substance: METHOTREXATE
     Route: 065
  8. SODIUM CARBONATE [Concomitant]
     Active Substance: SODIUM CARBONATE
  9. CHOLECALCIFEROL [Concomitant]
     Active Substance: CHOLECALCIFEROL
  10. RANITIDINE [Concomitant]
     Active Substance: RANITIDINE\RANITIDINE HYDROCHLORIDE
     Route: 065
  11. MELOXICAM. [Concomitant]
     Active Substance: MELOXICAM

REACTIONS (6)
  - Tendon rupture [Unknown]
  - Drug dose omission [Unknown]
  - Skin hypertrophy [Recovering/Resolving]
  - Inflammation [Unknown]
  - Hypersensitivity [Recovering/Resolving]
  - Animal bite [Unknown]

NARRATIVE: CASE EVENT DATE: 201505
